FAERS Safety Report 9770689 (Version 1)
Quarter: 2013Q4

REPORT INFORMATION
  Report Type: Spontaneous
  Country: US (occurrence: US)
  Receive Date: 20131218
  Receipt Date: 20131218
  Transmission Date: 20140711
  Serious: No
  Sender: FDA-Public Use
  Company Number: US-PFIZER INC-2013362238

PATIENT
  Sex: Male

DRUGS (1)
  1. QUILLIVANT XR [Suspect]
     Dosage: UNK
     Route: 048
     Dates: start: 2013, end: 20131213

REACTIONS (3)
  - Tic [Recovering/Resolving]
  - Excessive eye blinking [Recovering/Resolving]
  - Dyskinesia [Recovering/Resolving]
